FAERS Safety Report 5551801-8 (Version None)
Quarter: 2007Q4

REPORT INFORMATION
  Report Type: 
  Country: None (occurrence: None)
  Receive Date: 20071212
  Receipt Date: 20071205
  Transmission Date: 20080405
  Serious: Yes (Hospitalization)
  Sender: FDA-Public Use
  Company Number: TW-BOEHRINGER INGELHEIM PHARMACEUTICALS, INC.-2007-BP-25949YA

PATIENT
  Sex: Male

DRUGS (1)
  1. TAMSULOSIN (BLIND) [Suspect]
     Indication: BENIGN PROSTATIC HYPERPLASIA
     Route: 048
     Dates: start: 20040909

REACTIONS (1)
  - CEREBROVASCULAR ACCIDENT [None]
